FAERS Safety Report 10086154 (Version 1)
Quarter: 2014Q2

REPORT INFORMATION
  Report Type: Spontaneous
  Country: GB (occurrence: GB)
  Receive Date: 20140418
  Receipt Date: 20140418
  Transmission Date: 20141212
  Serious: Yes (Hospitalization)
  Sender: FDA-Public Use
  Company Number: GB-TEVA-475566ISR

PATIENT
  Age: 65 Year
  Sex: Female

DRUGS (7)
  1. DICLOFENAC [Suspect]
     Indication: RHEUMATOID ARTHRITIS
     Dosage: 150 MILLIGRAM DAILY;
     Route: 048
     Dates: start: 20100712, end: 20120402
  2. ACITRETIN [Concomitant]
     Dosage: 25 MG 4 TIMES A WEEK
     Dates: start: 20111220
  3. ALENDRONIC ACID [Concomitant]
     Dosage: 70 MG ONCE A WEEK
     Dates: start: 20100712
  4. FERROUS SULPHATE [Concomitant]
     Dosage: 600 MILLIGRAM DAILY;
     Dates: start: 20120118
  5. OMEPRAZOLE [Concomitant]
     Dosage: 20 MG, BID
     Dates: start: 20120118
  6. SULFASALAZINE [Concomitant]
     Dosage: 500 MG, BID
     Dates: start: 20120712
  7. TRAMADOL [Concomitant]
     Dosage: 500 MG, BID
     Dates: start: 20100712

REACTIONS (2)
  - Crohn^s disease [Recovered/Resolved with Sequelae]
  - Large intestinal stenosis [Recovered/Resolved with Sequelae]
